FAERS Safety Report 7793668-3 (Version None)
Quarter: 2011Q4

REPORT INFORMATION
  Report Type: 
  Country: None (occurrence: None)
  Receive Date: 20111003
  Receipt Date: 20110923
  Transmission Date: 20120403
  Serious: Yes (Hospitalization)
  Sender: FDA-Public Use
  Company Number: FR-PFIZER INC-A127577

PATIENT
  Age: 58 Year
  Sex: Female
  Weight: 60 kg

DRUGS (12)
  1. DEBRIDAT [Suspect]
     Dosage: 600 MG, 1X/DAY
     Route: 048
     Dates: start: 20011012
  2. MEDROL [Suspect]
     Dosage: 16 MG, 3X/DAY
     Route: 048
     Dates: start: 20011012
  3. FLUCONAZOLE [Suspect]
     Dosage: 50 MG, 2X/DAY
     Route: 048
     Dates: start: 20011012
  4. OMEPRAZOLE [Suspect]
     Indication: ILL-DEFINED DISORDER
     Dosage: 20 MG, 1X/DAY
     Route: 048
     Dates: start: 20011012
  5. MOTILIUM-M [Concomitant]
     Dates: start: 20011012
  6. MINERAL TAB [Concomitant]
  7. FERROUS GLUCONATE [Concomitant]
  8. LASIX [Suspect]
     Dosage: 20 MG, 1X/DAY
     Route: 048
     Dates: start: 20011012
  9. TAXOL [Suspect]
     Indication: ILL-DEFINED DISORDER
     Dosage: 140 MG, 1X/DAY
     Route: 048
     Dates: start: 20011031, end: 20011031
  10. DECAN [Concomitant]
  11. CERNEVIT-12 [Concomitant]
  12. TPN [Concomitant]

REACTIONS (2)
  - TOXIC SKIN ERUPTION [None]
  - SKIN EXFOLIATION [None]
